FAERS Safety Report 10237356 (Version 1)
Quarter: 2014Q2

REPORT INFORMATION
  Report Type: Spontaneous
  Country: US (occurrence: US)
  Receive Date: 20140613
  Receipt Date: 20140613
  Transmission Date: 20141212
  Serious: Yes (Hospitalization, Other)
  Sender: FDA-Public Use
  Company Number: PHEH2014US011882

PATIENT
  Sex: Female

DRUGS (2)
  1. FANAPT [Suspect]
     Indication: SCHIZOPHRENIA
     Dosage: 12 MG, BID
     Dates: start: 20120611, end: 20140601
  2. ZYPREXA [Suspect]
     Dosage: UNK UKN, UNK

REACTIONS (3)
  - Liver function test abnormal [Recovered/Resolved]
  - Body temperature decreased [Recovered/Resolved]
  - Renal impairment [Recovered/Resolved]
